FAERS Safety Report 7649468-8 (Version None)
Quarter: 2011Q3

REPORT INFORMATION
  Report Type: 
  Country: None (occurrence: None)
  Receive Date: 20110802
  Receipt Date: 20110720
  Transmission Date: 20111222
  Serious: Yes (Other)
  Sender: FDA-Public Use
  Company Number: CA-JNJFOC-20110710403

PATIENT
  Sex: Male
  Weight: 2.33 kg

DRUGS (2)
  1. REMICADE [Suspect]
     Indication: MATERNAL EXPOSURE DURING PREGNANCY
     Route: 064
  2. RANITIDINE [Concomitant]
     Route: 064
     Dates: end: 20101125

REACTIONS (1)
  - PREMATURE BABY [None]
